FAERS Safety Report 6647089-7 (Version None)
Quarter: 2010Q1

REPORT INFORMATION
  Report Type: 
  Country: None (occurrence: None)
  Receive Date: 20100323
  Receipt Date: 20100312
  Transmission Date: 20100710
  Serious: Yes (Hospitalization)
  Sender: FDA-Public Use
  Company Number: JP-SANOFI-AVENTIS-2010SA007984

PATIENT
  Age: 66 Year
  Sex: Male
  Weight: 48 kg

DRUGS (14)
  1. OXALIPLATIN [Suspect]
     Indication: RECTAL CANCER
     Route: 041
     Dates: start: 20091125, end: 20091125
  2. OXALIPLATIN [Suspect]
     Route: 041
     Dates: start: 20100121, end: 20100121
  3. CALCIUM LEVOFOLINATE [Suspect]
     Indication: RECTAL CANCER
     Route: 041
     Dates: start: 20091125, end: 20091125
  4. CALCIUM LEVOFOLINATE [Suspect]
     Route: 041
     Dates: start: 20100121, end: 20100121
  5. FLUOROURACIL [Suspect]
     Indication: RECTAL CANCER
     Route: 040
     Dates: start: 20091125, end: 20091125
  6. FLUOROURACIL [Suspect]
     Route: 041
     Dates: start: 20091125, end: 20091125
  7. FLUOROURACIL [Suspect]
     Route: 040
     Dates: start: 20100121, end: 20100121
  8. FLUOROURACIL [Suspect]
     Route: 041
     Dates: start: 20100121, end: 20100121
  9. BEVACIZUMAB [Suspect]
     Indication: RECTAL CANCER
     Route: 041
     Dates: start: 20091125, end: 20091125
  10. BEVACIZUMAB [Suspect]
     Route: 041
     Dates: start: 20100121, end: 20100121
  11. KYTRIL [Suspect]
     Indication: PROPHYLAXIS OF NAUSEA AND VOMITING
     Route: 042
     Dates: start: 20091125, end: 20100210
  12. DEXAMETHASONE SODIUM PHOSPHATE [Suspect]
     Indication: PROPHYLAXIS OF NAUSEA AND VOMITING
     Route: 042
     Dates: start: 20091125, end: 20100210
  13. BROTIZOLAM [Suspect]
     Indication: INSOMNIA
     Route: 048
     Dates: start: 20070225
  14. ADALAT [Suspect]
     Indication: HYPERTENSION
     Route: 048
     Dates: start: 20100107

REACTIONS (1)
  - HYPERKALAEMIA [None]
